FAERS Safety Report 9204526 (Version 1)
Quarter: 2013Q2

REPORT INFORMATION
  Report Type: Spontaneous
  Country: US (occurrence: US)
  Receive Date: 20130402
  Receipt Date: 20130402
  Transmission Date: 20140414
  Serious: No
  Sender: FDA-Public Use
  Company Number: US-009507513-1304USA000170

PATIENT
  Age: 33 Year
  Sex: Female

DRUGS (4)
  1. ZOCOR [Suspect]
     Dosage: 20 MG, HS
     Route: 048
     Dates: start: 2011, end: 2013
  2. ELAVIL [Concomitant]
  3. LORTAB [Concomitant]
  4. XANAX [Concomitant]

REACTIONS (2)
  - Muscle twitching [Unknown]
  - Liver function test abnormal [Unknown]
